FAERS Safety Report 18856363 (Version 1)
Quarter: 2021Q1

REPORT INFORMATION
  Report Type: Spontaneous
  Country: IT (occurrence: IT)
  Receive Date: 20210207
  Receipt Date: 20210207
  Transmission Date: 20210420
  Serious: Yes (Hospitalization)
  Sender: FDA-Public Use
  Company Number: IT-ASTRAZENECA-2021A023505

PATIENT
  Age: 91 Year
  Sex: Female

DRUGS (9)
  1. PAROXETINE. [Concomitant]
     Active Substance: PAROXETINE
  2. QUETIAPINE. [Suspect]
     Active Substance: QUETIAPINE
     Indication: DRUG ABUSE
     Dosage: UNKNOWN
     Route: 065
     Dates: start: 20201231, end: 20201231
  3. TALOFEN [Suspect]
     Active Substance: PROMAZINE HYDROCHLORIDE
     Indication: DRUG ABUSE
     Dosage: 4 G/100 ML
     Route: 048
     Dates: start: 20201231, end: 20201231
  4. ADALAT CRONO [Concomitant]
     Active Substance: NIFEDIPINE
  5. ESAPENT [Concomitant]
  6. ENDOXAN BAXTER [Concomitant]
     Active Substance: CYCLOPHOSPHAMIDE
  7. NEXIUM [Concomitant]
     Active Substance: ESOMEPRAZOLE MAGNESIUM
  8. BLOPRESS [Concomitant]
     Active Substance: CANDESARTAN CILEXETIL
  9. LEXOTAN [Suspect]
     Active Substance: BROMAZEPAM
     Indication: DRUG ABUSE
     Dosage: 2,5 MG/ML UNKNOWN
     Route: 048
     Dates: start: 20201231, end: 20201231

REACTIONS (2)
  - Sopor [Recovering/Resolving]
  - Drug abuse [Recovering/Resolving]

NARRATIVE: CASE EVENT DATE: 20201231
